FAERS Safety Report 7339235-7 (Version None)
Quarter: 2011Q1

REPORT INFORMATION
  Report Type: 
  Country: None (occurrence: None)
  Receive Date: 20110228
  Receipt Date: 20110210
  Transmission Date: 20110831
  Serious: Yes (Other)
  Sender: FDA-Public Use
  Company Number: 2011P1004152

PATIENT
  Age: 48 Year
  Weight: 58.0604 kg

DRUGS (1)
  1. PHENYTOIN SODIUM [Suspect]
     Indication: CONVULSION
     Dosage: 300 MG; HS; PO
     Route: 048
     Dates: start: 20101124

REACTIONS (2)
  - PRODUCT SUBSTITUTION ISSUE [None]
  - ANTICONVULSANT DRUG LEVEL ABOVE THERAPEUTIC [None]
